FAERS Safety Report 9348930 (Version 8)
Quarter: 2018Q3

REPORT INFORMATION
  Report Type: Spontaneous
  Country: CA (occurrence: CA)
  Receive Date: 20130614
  Receipt Date: 20180713
  Transmission Date: 20181010
  Serious: Yes (Hospitalization, Other)
  Sender: FDA-Public Use
  Company Number: CA-009507513-1306CAN005422

PATIENT
  Age: 36 Year
  Sex: Female

DRUGS (24)
  1. BOCEPREVIR [Interacting]
     Active Substance: BOCEPREVIR
     Indication: HEPATITIS C
  2. PEGINTERFERON ALFA?2B [Interacting]
     Active Substance: PEGINTERFERON ALFA-2B
     Dosage: 48.0 MICROGRAM, UNK
     Route: 065
  3. PEGINTERFERON ALFA?2A. [Interacting]
     Active Substance: PEGINTERFERON ALFA-2A
     Indication: CHRONIC HEPATITIS C
     Route: 065
  4. BOCEPREVIR [Interacting]
     Active Substance: BOCEPREVIR
     Indication: HEPATITIS CHOLESTATIC
     Dosage: 800.0 MG, 3 EVERY 1 DAY
     Route: 065
  5. RIBAVIRIN. [Interacting]
     Active Substance: RIBAVIRIN
     Indication: CHRONIC HEPATITIS C
     Dosage: 200 MG, 2 EVERY 1 DAY
     Route: 065
  6. RIBAVIRIN. [Interacting]
     Active Substance: RIBAVIRIN
     Dosage: UNK
     Route: 065
  7. PROGRAF [Interacting]
     Active Substance: TACROLIMUS\TACROLIMUS ANHYDROUS
     Dosage: UNK
     Route: 065
  8. INTRON A [Suspect]
     Active Substance: INTERFERON ALFA-2B
     Indication: HEPATITIS C
     Dosage: 400 MG, 2 EVERY 1 DAY
     Route: 065
  9. INTRON A [Interacting]
     Active Substance: INTERFERON ALFA-2B
     Dosage: 200 MG, 2 EVERY 1 DAY
     Route: 065
  10. RIBAVIRIN (+) PEGINTERFERON ALFA?2B [Interacting]
     Active Substance: PEGINTERFERON ALFA-2B\RIBAVIRIN
     Dosage: 400.0 MG, 2 EVERY 1 DAY
     Route: 065
  11. VICTRELIS TRIPLE [Interacting]
     Active Substance: BOCEPREVIR\PEGINTERFERON ALFA-2B\RIBAVIRIN
     Indication: PRODUCT USED FOR UNKNOWN INDICATION
     Route: 065
  12. RIBAVIRIN. [Interacting]
     Active Substance: RIBAVIRIN
     Dosage: UNK
     Route: 065
  13. PEGINTERFERON ALFA?2A. [Interacting]
     Active Substance: PEGINTERFERON ALFA-2A
     Indication: HEPATITIS C
  14. MYCOPHENOLATE MOFETIL. [Interacting]
     Active Substance: MYCOPHENOLATE MOFETIL
     Indication: IMMUNOSUPPRESSION
  15. RIBAVIRIN (+) PEGINTERFERON ALFA?2B [Interacting]
     Active Substance: PEGINTERFERON ALFA-2B\RIBAVIRIN
     Indication: CHRONIC HEPATITIS C
     Dosage: 200.0 MG, 2 EVERY 1 DAY
     Route: 065
  16. INTRON A [Interacting]
     Active Substance: INTERFERON ALFA-2B
     Dosage: 48 MICROGRAM, UNK
     Route: 065
  17. PEGINTERFERON ALFA?2B [Interacting]
     Active Substance: PEGINTERFERON ALFA-2B
     Indication: HEPATITIS C
     Dosage: 400 MG, 2 EVERY 1 DAY
     Route: 065
  18. PROGRAF [Interacting]
     Active Substance: TACROLIMUS\TACROLIMUS ANHYDROUS
     Indication: LIVER TRANSPLANT
     Dosage: 0.5 MG, 1 EVERY 3 WEEKS
     Route: 065
  19. PROGRAF [Interacting]
     Active Substance: TACROLIMUS\TACROLIMUS ANHYDROUS
     Indication: IMMUNOSUPPRESSION
     Dosage: 0.5 MG, 2 EVERY 1 DAY
     Route: 065
  20. INTRON A [Interacting]
     Active Substance: INTERFERON ALFA-2B
     Dosage: UNK
     Route: 065
  21. RIBAVIRIN. [Interacting]
     Active Substance: RIBAVIRIN
     Indication: HEPATITIS C
     Dosage: 400 MG, 2 EVERY 1 DAY
     Route: 065
  22. MYCOPHENOLATE MOFETIL. [Interacting]
     Active Substance: MYCOPHENOLATE MOFETIL
     Indication: LIVER TRANSPLANT
     Route: 065
  23. PEGASYS [Interacting]
     Active Substance: PEGINTERFERON ALFA-2A
     Indication: PRODUCT USED FOR UNKNOWN INDICATION
     Route: 065
  24. WARFARIN [Concomitant]
     Active Substance: WARFARIN
     Indication: SHUNT THROMBOSIS
     Route: 065

REACTIONS (13)
  - Hepatitis C [Unknown]
  - Drug interaction [Unknown]
  - Neutropenia [Unknown]
  - Liver transplant [Unknown]
  - Hepatic enzyme increased [Unknown]
  - Ascites [Unknown]
  - Jaundice [Unknown]
  - Anaemia [Recovering/Resolving]
  - Hepatic function abnormal [Unknown]
  - Drug level increased [Unknown]
  - Hepatitis cholestatic [Unknown]
  - Renal impairment [Unknown]
  - Drug ineffective [Unknown]
